FAERS Safety Report 8688107 (Version 2)
Quarter: 2012Q4

REPORT INFORMATION
  Report Type: 
  Country: GB (occurrence: GB)
  Receive Date: 20120727
  Receipt Date: 20120920
  Transmission Date: 20130627
  Serious: Yes (Life-Threatening, Hospitalization)
  Sender: FDA-Public Use
  Company Number: GB-TEVA-349192ISR

PATIENT
  Age: 70 Year
  Sex: Male

DRUGS (8)
  1. FLUCONAZOLE [Suspect]
     Indication: ORAL CANDIDIASIS
     Dosage: Patient took 8 x 50 mg fluconazole capsules on day 1 and 6 x 50 mg fluconazole capsules on day 2.
     Route: 048
     Dates: start: 20120517, end: 20120518
  2. RANITIDINE [Concomitant]
     Route: 048
  3. PARACETAMOL [Concomitant]
     Route: 048
  4. BISOPROLOL [Concomitant]
     Dosage: In the morning
     Route: 048
  5. FUROSEMIDE [Concomitant]
     Dosage: In the morning
     Route: 048
  6. LISINOPRIL [Concomitant]
     Route: 048
  7. OMEPRAZOLE [Concomitant]
     Route: 048
  8. METOCLOPRAMIDE [Concomitant]
     Route: 048

REACTIONS (2)
  - Overdose [Unknown]
  - Renal failure acute [Recovering/Resolving]
